FAERS Safety Report 7485072-2 (Version None)
Quarter: 2011Q2

REPORT INFORMATION
  Report Type: 
  Country: None (occurrence: None)
  Receive Date: 20110517
  Receipt Date: 20101111
  Transmission Date: 20111010
  Serious: No
  Sender: FDA-Public Use
  Company Number: US-BAYER-201018688BCC

PATIENT
  Age: 58 Year
  Sex: Female
  Weight: 70.455 kg

DRUGS (11)
  1. ALPHA LIPOIC ACID [Concomitant]
     Dosage: AS USED DOSE: UNK
     Route: 065
  2. CAMELLIA SINENSIS [Concomitant]
     Route: 065
  3. VITAMIN D [Concomitant]
     Dosage: AS USED DOSE: UNK
     Route: 065
  4. LIPOFLAVONOID [Concomitant]
     Dosage: AS USED DOSE: UNK
     Route: 065
  5. VITAMIN B-12 [Concomitant]
     Dosage: AS USED DOSE: UNK
     Route: 065
  6. CO Q10 [Concomitant]
     Dosage: AS USED DOSE: UNK
     Route: 065
  7. L-CARNITINE [Concomitant]
     Dosage: AS USED DOSE: UNK
     Route: 065
  8. LACTOBACILLUS ACIDOPHILUS [Concomitant]
     Dosage: AS USED DOSE: UNK
     Route: 065
  9. LOVAZA [Concomitant]
     Dosage: AS USED DOSE: UNK
     Route: 065
  10. NAPROXEN (ALEVE) [Suspect]
     Indication: INFLUENZA LIKE ILLNESS
     Dosage: BOTTLE COUNT 100S
     Route: 048
     Dates: start: 20100720
  11. AVONEX [Concomitant]
     Route: 065

REACTIONS (1)
  - DYSGEUSIA [None]
